FAERS Safety Report 23942049 (Version 1)
Quarter: 2024Q2

REPORT INFORMATION
  Report Type: Spontaneous
  Country: US (occurrence: None)
  Receive Date: 20240604
  Receipt Date: 20240604
  Transmission Date: 20240715
  Serious: Yes (Hospitalization)
  Sender: FDA-Public Use
  Company Number: None

PATIENT
  Age: 38 Year
  Sex: Female
  Weight: 129.6 kg

DRUGS (24)
  1. CAPLYTA [Suspect]
     Active Substance: LUMATEPERONE
     Indication: Depression
     Dosage: FREQUENCY : AT BEDTIME;?
     Route: 048
     Dates: start: 20240206
  2. LEVOTHYROXINE [Concomitant]
     Active Substance: LEVOTHYROXINE\LEVOTHYROXINE SODIUM
  3. HYDROCORTISONE [Concomitant]
     Active Substance: HYDROCORTISONE
  4. CALCIUM [Concomitant]
     Active Substance: CALCIUM
  5. CETIRIZINE [Concomitant]
     Active Substance: CETIRIZINE HYDROCHLORIDE
  6. YAZ BIRTH CONTROL [Concomitant]
  7. FUROSEMIDE [Concomitant]
     Active Substance: FUROSEMIDE
  8. POTASSIUM [Concomitant]
     Active Substance: POTASSIUM
  9. AZATHIOPRINE [Concomitant]
     Active Substance: AZATHIOPRINE
  10. CAPLYTA [Concomitant]
     Active Substance: LUMATEPERONE
  11. OXYCODONE [Concomitant]
     Active Substance: OXYCODONE\OXYCODONE HYDROCHLORIDE
  12. UBRELVY [Concomitant]
     Active Substance: UBROGEPANT
  13. ADDERALL [Concomitant]
     Active Substance: AMPHETAMINE ASPARTATE\AMPHETAMINE SULFATE\DEXTROAMPHETAMINE SACCHARATE\DEXTROAMPHETAMINE SULFATE
  14. DESVENLAFAXINE [Concomitant]
     Active Substance: DESVENLAFAXINE
  15. ZOFRAN [Concomitant]
     Active Substance: ONDANSETRON HYDROCHLORIDE
  16. PANTOPRAZOLE [Concomitant]
     Active Substance: PANTOPRAZOLE
  17. BACLOFEN [Concomitant]
     Active Substance: BACLOFEN
  18. VITAMIN D3 [Concomitant]
     Active Substance: CHOLECALCIFEROL
  19. EPINEPHRINE [Concomitant]
     Active Substance: EPINEPHRINE
  20. QUVIVIQ [Concomitant]
     Active Substance: DARIDOREXANT
  21. REMICADE [Concomitant]
     Active Substance: INFLIXIMAB
  22. MULTI-VITAMIN [Concomitant]
  23. B-12 COMPLEX [Concomitant]
  24. PROBIOTIC [Concomitant]

REACTIONS (2)
  - Loss of consciousness [None]
  - Epilepsy [None]

NARRATIVE: CASE EVENT DATE: 20240515
